FAERS Safety Report 25637790 (Version 1)
Quarter: 2025Q3

REPORT INFORMATION
  Report Type: Spontaneous
  Country: RU (occurrence: RU)
  Receive Date: 20250804
  Receipt Date: 20250804
  Transmission Date: 20251021
  Serious: Yes (Hospitalization, Other)
  Sender: RANBAXY
  Company Number: RU-SUN PHARMACEUTICAL INDUSTRIES LTD-2025R1-520350

PATIENT
  Age: 36 Year
  Sex: Female

DRUGS (4)
  1. METHYLPREDNISOLONE [Suspect]
     Active Substance: METHYLPREDNISOLONE
     Indication: Immunosuppression
     Dosage: 4 MILLIGRAM, QD
     Route: 058
     Dates: start: 202303
  2. METHYLPREDNISOLONE [Suspect]
     Active Substance: METHYLPREDNISOLONE
     Dosage: 12 MILLIGRAM, QD
     Route: 058
  3. GENTAMICIN [Suspect]
     Active Substance: GENTAMICIN
     Indication: Immunosuppression
     Route: 058
     Dates: start: 202212
  4. METHOTREXATE [Suspect]
     Active Substance: METHOTREXATE
     Indication: Immunosuppression
     Dosage: 10 MILLIGRAM, WEEKLY
     Route: 058
     Dates: start: 202212

REACTIONS (2)
  - Loefgren syndrome [Unknown]
  - Cutaneous sarcoidosis [Unknown]
